FAERS Safety Report 5732151-3 (Version None)
Quarter: 2008Q2

REPORT INFORMATION
  Report Type: 
  Country: None (occurrence: None)
  Receive Date: 20080508
  Receipt Date: 20080501
  Transmission Date: 20081010
  Serious: Yes (Hospitalization)
  Sender: FDA-Public Use
  Company Number: GB-ABBOTT-08P-167-0449657-00

PATIENT
  Age: 63 Year
  Sex: Female

DRUGS (2)
  1. TEVETEN [Suspect]
     Indication: DRUG USE FOR UNKNOWN INDICATION
     Dosage: N
     Route: 048
     Dates: start: 20010101, end: 20071101
  2. TEVETEN [Suspect]
     Route: 048
     Dates: start: 20071101

REACTIONS (3)
  - COUGH [None]
  - DYSPHONIA [None]
  - PHARYNGEAL OEDEMA [None]
